FAERS Safety Report 4723880-9 (Version None)
Quarter: 2005Q3

REPORT INFORMATION
  Report Type: 
  Country: None (occurrence: None)
  Receive Date: 20050725
  Receipt Date: 20050711
  Transmission Date: 20060218
  Serious: Yes (Other)
  Sender: FDA-Public Use
  Company Number: DE-JNJFOC-20050702397

PATIENT
  Sex: Male
  Weight: 42 kg

DRUGS (1)
  1. CONCERTA [Suspect]
     Route: 048
     Dates: start: 20050101, end: 20050401

REACTIONS (4)
  - CONFUSIONAL STATE [None]
  - HALLUCINATION [None]
  - SLEEP DISORDER [None]
  - TIC [None]
